FAERS Safety Report 8621473-4 (Version None)
Quarter: 2012Q3

REPORT INFORMATION
  Report Type: 
  Country: None (occurrence: None)
  Receive Date: 20120824
  Receipt Date: 20120815
  Transmission Date: 20120928
  Serious: Yes (Other)
  Sender: FDA-Public Use
  Company Number: US-ASTRAZENECA-2012SE00920

PATIENT
  Age: 69 Year
  Sex: Female
  Weight: 65.8 kg

DRUGS (3)
  1. CRESTOR [Suspect]
     Indication: BLOOD CHOLESTEROL ABNORMAL
     Route: 048
  2. CETIA [Concomitant]
  3. ASPIRIN [Concomitant]

REACTIONS (4)
  - LOCALISED INFECTION [None]
  - NAIL INJURY [None]
  - PAIN IN EXTREMITY [None]
  - MALAISE [None]
